FAERS Safety Report 9671950 (Version 1)
Quarter: 2013Q4

REPORT INFORMATION
  Report Type: Spontaneous
  Country: US (occurrence: US)
  Receive Date: 20131106
  Receipt Date: 20131106
  Transmission Date: 20140711
  Serious: Yes (Hospitalization, Other)
  Sender: FDA-Public Use
  Company Number: US-ABBVIE-13P-163-1164447-00

PATIENT
  Sex: Female
  Weight: 63.56 kg

DRUGS (2)
  1. SYNTHROID [Suspect]
     Indication: AUTOIMMUNE THYROIDITIS
     Dates: start: 201301
  2. SYNTHROID [Suspect]
     Dates: start: 1999

REACTIONS (9)
  - Gallbladder non-functioning [Recovered/Resolved]
  - Abdominal pain [Recovered/Resolved]
  - Nausea [Recovered/Resolved]
  - Vomiting [Recovered/Resolved]
  - Epistaxis [Not Recovered/Not Resolved]
  - Dehydration [Not Recovered/Not Resolved]
  - Coeliac disease [Not Recovered/Not Resolved]
  - Malnutrition [Recovered/Resolved]
  - Diarrhoea [Recovered/Resolved]
